FAERS Safety Report 12321527 (Version 1)
Quarter: 2016Q2

REPORT INFORMATION
  Report Type: Spontaneous
  Country: CA (occurrence: CA)
  Receive Date: 20160502
  Receipt Date: 20160502
  Transmission Date: 20160815
  Serious: Yes (Death)
  Sender: FDA-Public Use
  Company Number: CA-009507513-1604CAN018105

PATIENT
  Age: 28 Year
  Sex: Female

DRUGS (1)
  1. MARVELON [Suspect]
     Active Substance: DESOGESTREL\ETHINYL ESTRADIOL
     Indication: CONTRACEPTION
     Dosage: ONE TABLET, CYCLICAL
     Route: 048

REACTIONS (3)
  - Pulmonary embolism [Fatal]
  - Ischaemia [Fatal]
  - Haemorrhage [Fatal]
